FAERS Safety Report 6338547-3 (Version None)
Quarter: 2009Q3

REPORT INFORMATION
  Report Type: 
  Country: None (occurrence: None)
  Receive Date: 20090901
  Receipt Date: 20090818
  Transmission Date: 20100115
  Serious: Yes (Death)
  Sender: FDA-Public Use
  Company Number: 090729-0000891

PATIENT
  Age: 10 Day
  Sex: Male

DRUGS (3)
  1. COSMEGEN [Suspect]
     Indication: CONGENITAL FIBROSARCOMA
     Dosage: 10 UG/KG
  2. VINCRISTINE [Suspect]
     Indication: CONGENITAL FIBROSARCOMA
  3. CYCLOPHOSPHAMIDE [Suspect]
     Indication: CONGENITAL FIBROSARCOMA

REACTIONS (6)
  - ACTIVATED PARTIAL THROMBOPLASTIN TIME PROLONGED [None]
  - CAESAREAN SECTION [None]
  - GENERAL PHYSICAL HEALTH DETERIORATION [None]
  - INTERNATIONAL NORMALISED RATIO INCREASED [None]
  - SEPSIS [None]
  - VENOOCCLUSIVE LIVER DISEASE [None]
